FAERS Safety Report 6708661-9 (Version None)
Quarter: 2010Q2

REPORT INFORMATION
  Report Type: 
  Country: None (occurrence: None)
  Receive Date: 20100503
  Receipt Date: 20100426
  Transmission Date: 20101027
  Serious: Yes (Other)
  Sender: FDA-Public Use
  Company Number: US-RB-007792-10

PATIENT
  Sex: Female

DRUGS (3)
  1. SUBOXONE [Suspect]
     Route: 060
     Dates: start: 20100412, end: 20100419
  2. SUBOXONE [Suspect]
     Route: 060
     Dates: start: 20100420
  3. DEPAKOTE [Concomitant]
     Route: 065

REACTIONS (3)
  - CONVULSION [None]
  - LETHARGY [None]
  - STRESS [None]
